FAERS Safety Report 18975887 (Version 1)
Quarter: 2021Q1

REPORT INFORMATION
  Report Type: Spontaneous
  Country: BR (occurrence: BR)
  Receive Date: 20210305
  Receipt Date: 20210305
  Transmission Date: 20210420
  Serious: Yes (Other)
  Sender: FDA-Public Use
  Company Number: BR-BAUSCH-BL-2021-007030

PATIENT
  Age: 38 Year
  Sex: Female

DRUGS (14)
  1. LORATADINE. [Concomitant]
     Active Substance: LORATADINE
     Indication: DISSEMINATED SPOROTRICHOSIS
     Route: 048
     Dates: start: 2019, end: 2019
  2. DOLUTEGRAVIR [Concomitant]
     Active Substance: DOLUTEGRAVIR
     Indication: HIV INFECTION
     Dates: start: 20190326, end: 2019
  3. SULFAMETHOXAZOLE;TRIMETHOPRIM [Concomitant]
     Active Substance: SULFAMETHOXAZOLE\TRIMETHOPRIM
     Indication: PROPHYLAXIS
  4. HYDROCORTISONE. [Suspect]
     Active Substance: HYDROCORTISONE
     Indication: DISSEMINATED SPOROTRICHOSIS
     Dosage: SINGLE DOSE
     Route: 042
     Dates: start: 2019, end: 2019
  5. PREDNISONE. [Suspect]
     Active Substance: PREDNISONE
     Route: 048
     Dates: start: 2019, end: 2019
  6. PREDNISONE. [Suspect]
     Active Substance: PREDNISONE
     Dosage: DOSE SCALING
     Route: 048
     Dates: start: 2019, end: 2019
  7. PROMETHAZINE [Concomitant]
     Active Substance: PROMETHAZINE HYDROCHLORIDE
     Indication: DISSEMINATED SPOROTRICHOSIS
     Dates: start: 2019, end: 2019
  8. TENOFOVIR, LAMIVUDINE [Concomitant]
     Indication: HIV INFECTION
     Dates: start: 20190326, end: 2019
  9. PREDNISONE. [Suspect]
     Active Substance: PREDNISONE
     Dosage: MAINTAINED DOSE
     Route: 065
     Dates: start: 2019, end: 2019
  10. NYSTATIN. [Concomitant]
     Active Substance: NYSTATIN
     Indication: DISSEMINATED SPOROTRICHOSIS
     Dosage: 10 ML, 1 ML CONTAINING 100,000 U
     Route: 048
     Dates: start: 2019, end: 2019
  11. LEVOFLOXACIN. [Concomitant]
     Active Substance: LEVOFLOXACIN
     Indication: PNEUMONIA BACTERIAL
     Dates: start: 201903, end: 201903
  12. PREDNISONE. [Suspect]
     Active Substance: PREDNISONE
     Indication: DISSEMINATED SPOROTRICHOSIS
     Route: 065
     Dates: start: 2019, end: 2019
  13. ATAZANAVIR;RITONAVIR [Concomitant]
     Active Substance: ATAZANAVIR\RITONAVIR
     Indication: HIV INFECTION
     Dates: start: 2019, end: 2019
  14. SULFAMETHOXAZOLE;TRIMETHOPRIM [Concomitant]
     Active Substance: SULFAMETHOXAZOLE\TRIMETHOPRIM
     Indication: PROPHYLAXIS
     Dates: start: 201903, end: 2019

REACTIONS (2)
  - Disseminated sporotrichosis [Recovered/Resolved]
  - Condition aggravated [Recovered/Resolved]

NARRATIVE: CASE EVENT DATE: 2019
